FAERS Safety Report 12330809 (Version 2)
Quarter: 2016Q2

REPORT INFORMATION
  Report Type: Report from Study
  Country: JP (occurrence: JP)
  Receive Date: 20160504
  Receipt Date: 20160623
  Transmission Date: 20160815
  Serious: Yes (Hospitalization)
  Sender: FDA-Public Use
  Company Number: JP-EISAI MEDICAL RESEARCH-EC-2016-016567

PATIENT
  Age: 76 Year
  Sex: Male

DRUGS (8)
  1. PANTETHINE [Concomitant]
     Active Substance: PANTETHINE
  2. ARICEPT [Suspect]
     Active Substance: DONEPEZIL HYDROCHLORIDE
     Indication: DEMENTIA WITH LEWY BODIES
     Route: 048
     Dates: start: 20160226, end: 20160303
  3. ARICEPT [Suspect]
     Active Substance: DONEPEZIL HYDROCHLORIDE
     Route: 048
     Dates: start: 20160316, end: 20160322
  4. AMITIZA [Concomitant]
     Active Substance: LUBIPROSTONE
  5. ARICEPT [Suspect]
     Active Substance: DONEPEZIL HYDROCHLORIDE
     Route: 048
     Dates: start: 20160323, end: 20160326
  6. YOKUKANSAN [Concomitant]
     Active Substance: HERBALS
  7. ARICEPT [Suspect]
     Active Substance: DONEPEZIL HYDROCHLORIDE
     Route: 048
     Dates: start: 20160304, end: 20160315
  8. LENDORMIN D [Concomitant]
     Active Substance: BROTIZOLAM

REACTIONS (2)
  - Decreased appetite [Recovering/Resolving]
  - Gastrointestinal disorder [Recovering/Resolving]

NARRATIVE: CASE EVENT DATE: 20160317
